FAERS Safety Report 9007788 (Version 1)
Quarter: 2013Q1

REPORT INFORMATION
  Report Type: Spontaneous
  Country: US (occurrence: US)
  Receive Date: 20130111
  Receipt Date: 20130111
  Transmission Date: 20140127
  Serious: Yes (Other)
  Sender: FDA-Public Use
  Company Number: US-009507513-0907USA03824

PATIENT
  Age: 7 Year
  Sex: Male
  Weight: 25.86 kg

DRUGS (3)
  1. SINGULAIR [Suspect]
     Indication: RHINITIS ALLERGIC
     Dosage: 5 MG, QD
     Route: 048
     Dates: start: 20050419, end: 20081001
  2. SINGULAIR [Suspect]
     Indication: COUGH
  3. ALLEGRA [Concomitant]
     Dosage: 30 MG, BID

REACTIONS (4)
  - Anger [Recovered/Resolved]
  - Depression [Recovered/Resolved]
  - Disturbance in attention [Recovered/Resolved]
  - Psychomotor hyperactivity [Recovered/Resolved]
